FAERS Safety Report 9133911 (Version 3)
Quarter: 2013Q3

REPORT INFORMATION
  Report Type: Spontaneous
  Country: JP (occurrence: JP)
  Receive Date: 20130303
  Receipt Date: 20130717
  Transmission Date: 20140515
  Serious: Yes (Hospitalization)
  Sender: FDA-Public Use
  Company Number: JP-BRISTOL-MYERS SQUIBB COMPANY-17408410

PATIENT
  Age: 63 Year
  Sex: Female

DRUGS (7)
  1. ORENCIA [Suspect]
     Indication: RHEUMATOID ARTHRITIS
     Dosage: INTRPD AND RESUMED AGAIN.
     Dates: start: 20101203
  2. RHEUMATREX [Concomitant]
     Indication: RHEUMATOID ARTHRITIS
     Dosage: 12MG/WEEK:DOSE
     Dates: start: 20060206
  3. ONEALFA [Concomitant]
     Route: 048
  4. PREDNISOLONE [Concomitant]
     Indication: RHEUMATOID ARTHRITIS
     Route: 048
     Dates: start: 20090424
  5. VOLTAREN [Concomitant]
     Indication: RHEUMATOID ARTHRITIS
  6. FOLIAMIN [Concomitant]
     Indication: PROPHYLAXIS
  7. TAKEPRON [Concomitant]
     Indication: GASTRITIS PROPHYLAXIS

REACTIONS (2)
  - Guillain-Barre syndrome [Recovering/Resolving]
  - Nasopharyngitis [Recovering/Resolving]
